FAERS Safety Report 5556722-2 (Version None)
Quarter: 2007Q4

REPORT INFORMATION
  Report Type: 
  Country: None (occurrence: None)
  Receive Date: 20071213
  Receipt Date: 20070924
  Transmission Date: 20080405
  Serious: No
  Sender: FDA-Public Use
  Company Number: US-AMGEN-KDL242871

PATIENT
  Sex: Female

DRUGS (3)
  1. ENBREL [Suspect]
     Indication: ANKYLOSING SPONDYLITIS
     Route: 058
     Dates: start: 20070803
  2. ENBREL [Suspect]
     Indication: SARCOIDOSIS
  3. ENBREL [Suspect]
     Indication: DRUG USE FOR UNKNOWN INDICATION

REACTIONS (9)
  - ARTHRALGIA [None]
  - ARTHROPOD BITE [None]
  - BACK PAIN [None]
  - EAR HAEMORRHAGE [None]
  - HAEMATOMA [None]
  - INCREASED TENDENCY TO BRUISE [None]
  - MOBILITY DECREASED [None]
  - SKIN LACERATION [None]
  - ULCER [None]
